FAERS Safety Report 5494651-3 (Version None)
Quarter: 2007Q4

REPORT INFORMATION
  Report Type: 
  Country: None (occurrence: None)
  Receive Date: 20071023
  Receipt Date: 20071023
  Transmission Date: 20080405
  Serious: Yes (Life-Threatening, Disabling)
  Sender: FDA-Public Use
  Company Number: None

PATIENT
  Age: 62 Year
  Sex: Male
  Weight: 72.5755 kg

DRUGS (1)
  1. CLINDAMYCIN HCL [Suspect]
     Indication: TOOTH INFECTION
     Dates: start: 20070315, end: 20070325

REACTIONS (1)
  - CLOSTRIDIAL INFECTION [None]
